FAERS Safety Report 7436938-0 (Version None)
Quarter: 2011Q2

REPORT INFORMATION
  Report Type: 
  Country: None (occurrence: None)
  Receive Date: 20110426
  Receipt Date: 20110413
  Transmission Date: 20111010
  Serious: Yes (Hospitalization, Other)
  Sender: FDA-Public Use
  Company Number: US-TYCO HEALTHCARE/MALLINCKRODT-T201100766

PATIENT
  Age: 35 Week
  Weight: 2.33 kg

DRUGS (3)
  1. FENTANYL CITRATE [Suspect]
     Dosage: UNK
  2. ACETAMINOPHEN AND HYDROCODONE BITARTRATE [Suspect]
     Dosage: UNK
  3. OXYCODONE/ACETAMINOPHEN [Suspect]
     Dosage: UNK

REACTIONS (3)
  - PREMATURE BABY [None]
  - DRUG WITHDRAWAL SYNDROME NEONATAL [None]
  - DRUG EXPOSURE DURING PREGNANCY [None]
